FAERS Safety Report 25057042 (Version 1)
Quarter: 2025Q1

REPORT INFORMATION
  Report Type: Spontaneous
  Country: CA (occurrence: CA)
  Receive Date: 20250310
  Receipt Date: 20250310
  Transmission Date: 20250409
  Serious: Yes (Other)
  Sender: NOVO NORDISK
  Company Number: CA-NOVOPROD-1320766

PATIENT
  Age: 63 Year
  Sex: Male

DRUGS (1)
  1. OZEMPIC [Suspect]
     Active Substance: SEMAGLUTIDE
     Indication: Type 2 diabetes mellitus
     Dosage: 1 MG, QW
     Route: 058
     Dates: start: 20221101

REACTIONS (7)
  - Device malfunction [Unknown]
  - Device issue [Unknown]
  - Injection site swelling [Recovering/Resolving]
  - Injection site pruritus [Unknown]
  - Device delivery system issue [Unknown]
  - Incorrect dose administered by device [Unknown]
  - Product storage error [Unknown]

NARRATIVE: CASE EVENT DATE: 20241001
